FAERS Safety Report 19474061 (Version 1)
Quarter: 2021Q2

REPORT INFORMATION
  Report Type: Spontaneous
  Country: JP (occurrence: JP)
  Receive Date: 20210629
  Receipt Date: 20210629
  Transmission Date: 20210717
  Serious: Yes (Life-Threatening, Hospitalization, Other)
  Sender: FDA-Public Use
  Company Number: JP-LUPIN PHARMACEUTICALS INC.-2021-10466

PATIENT
  Age: 14 Year
  Sex: Female

DRUGS (11)
  1. TRANEXAMIC ACID. [Concomitant]
     Active Substance: TRANEXAMIC ACID
     Indication: NASOPHARYNGITIS
  2. METHYLPREDNISOLONE. [Suspect]
     Active Substance: METHYLPREDNISOLONE
     Indication: STEVENS-JOHNSON SYNDROME
     Dosage: 1000 MILLIGRAM, QD (FOR 3 CONSECUTIVE DAYS)
     Route: 065
  3. ACETAMINOPHEN. [Suspect]
     Active Substance: ACETAMINOPHEN
     Indication: NASOPHARYNGITIS
  4. LACTOMIN [Concomitant]
     Active Substance: DIETARY SUPPLEMENT\PROBIOTICS
     Indication: PYREXIA
     Dosage: UNK
     Route: 065
  5. TRANEXAMIC ACID. [Concomitant]
     Active Substance: TRANEXAMIC ACID
     Indication: PYREXIA
     Dosage: UNK
     Route: 065
  6. L?CARBOCYSTEINE [Concomitant]
     Active Substance: CARBOCYSTEINE
     Indication: PYREXIA
     Dosage: UNK
     Route: 065
  7. CEFDINIR. [Suspect]
     Active Substance: CEFDINIR
     Indication: NASOPHARYNGITIS
  8. ACETAMINOPHEN. [Suspect]
     Active Substance: ACETAMINOPHEN
     Indication: PYREXIA
     Dosage: UNK
     Route: 065
  9. CEFDINIR. [Suspect]
     Active Substance: CEFDINIR
     Indication: PYREXIA
     Dosage: UNK
     Route: 065
  10. LACTOMIN [Concomitant]
     Active Substance: DIETARY SUPPLEMENT\PROBIOTICS
     Indication: NASOPHARYNGITIS
  11. L?CARBOCYSTEINE [Concomitant]
     Active Substance: CARBOCYSTEINE
     Indication: NASOPHARYNGITIS

REACTIONS (5)
  - Drug ineffective [Unknown]
  - Coma hepatic [Recovered/Resolved]
  - Stevens-Johnson syndrome [Recovered/Resolved]
  - Acute hepatic failure [Recovered/Resolved]
  - Ascites [Recovered/Resolved]
